FAERS Safety Report 10393905 (Version 2)
Quarter: 2014Q3

REPORT INFORMATION
  Report Type: Spontaneous
  Country: US (occurrence: US)
  Receive Date: 20140819
  Receipt Date: 20140819
  Transmission Date: 20150326
  Serious: No
  Sender: FDA-Public Use
  Company Number: US-ASTELLAS-2014US004229

PATIENT
  Age: 13 Year
  Sex: Male

DRUGS (4)
  1. AMBISOME [Suspect]
     Active Substance: AMPHOTERICIN B
     Indication: HYPOPITUITARISM
  2. AMBISOME [Suspect]
     Active Substance: AMPHOTERICIN B
     Indication: WHITE BLOOD CELL DISORDER
  3. AMBISOME [Suspect]
     Active Substance: AMPHOTERICIN B
     Indication: MUCOSAL INFLAMMATION
     Route: 042
     Dates: start: 20140313, end: 20140401
  4. AMBISOME [Suspect]
     Active Substance: AMPHOTERICIN B
     Indication: DIFFUSE LARGE B-CELL LYMPHOMA

REACTIONS (1)
  - Off label use [Recovered/Resolved]

NARRATIVE: CASE EVENT DATE: 20140313
